FAERS Safety Report 7609422-9 (Version None)
Quarter: 2011Q3

REPORT INFORMATION
  Report Type: 
  Country: None (occurrence: None)
  Receive Date: 20110714
  Receipt Date: 20110707
  Transmission Date: 20111222
  Serious: Yes (Hospitalization)
  Sender: FDA-Public Use
  Company Number: AU-JNJFOC-20110704107

PATIENT
  Sex: Female

DRUGS (4)
  1. STELARA [Suspect]
     Indication: PRODUCT USED FOR UNKNOWN INDICATION
     Route: 058
     Dates: start: 20110128
  2. STELARA [Suspect]
     Route: 058
     Dates: start: 20101105
  3. STELARA [Suspect]
     Route: 058
     Dates: start: 20100423
  4. STELARA [Suspect]
     Route: 058
     Dates: start: 20110701

REACTIONS (1)
  - CHOLECYSTECTOMY [None]
